FAERS Safety Report 5402845-8 (Version None)
Quarter: 2007Q3

REPORT INFORMATION
  Report Type: 
  Country: None (occurrence: None)
  Receive Date: 20070727
  Receipt Date: 20070621
  Transmission Date: 20080115
  Serious: Yes (Hospitalization)
  Sender: FDA-Public Use
  Company Number: 6035341

PATIENT
  Age: 44 Year
  Sex: Female

DRUGS (4)
  1. MIRTAZAPINE [Suspect]
     Indication: DRUG USE FOR UNKNOWN INDICATION
  2. FOLIC ACID [Concomitant]
  3. OMEPRAZOLE [Concomitant]
  4. PROMETHAZINE HCL [Concomitant]

REACTIONS (3)
  - HYDRONEPHROSIS [None]
  - URINARY RETENTION [None]
  - URINARY TRACT INFECTION [None]
